FAERS Safety Report 21756033 (Version 2)
Quarter: 2022Q4

REPORT INFORMATION
  Report Type: Spontaneous
  Country: AU (occurrence: AU)
  Receive Date: 20221220
  Receipt Date: 20221221
  Transmission Date: 20230113
  Serious: Yes (Hospitalization, Other)
  Sender: FDA-Public Use
  Company Number: AU-MLMSERVICE-20221202-3958689-1

PATIENT
  Age: 74 Year
  Sex: Female

DRUGS (1)
  1. GEMCITABINE HYDROCHLORIDE [Suspect]
     Active Substance: GEMCITABINE HYDROCHLORIDE
     Indication: Lung squamous cell carcinoma metastatic
     Dosage: UNK UNK, UNKNOWN
     Route: 065

REACTIONS (1)
  - Necrotising myositis [Recovering/Resolving]
